FAERS Safety Report 4711103-6 (Version None)
Quarter: 2005Q3

REPORT INFORMATION
  Report Type: 
  Country: None (occurrence: None)
  Receive Date: 20050711
  Receipt Date: 20050630
  Transmission Date: 20060218
  Serious: Yes (Other)
  Sender: FDA-Public Use
  Company Number: 200511713EU

PATIENT
  Age: 91 Year
  Sex: Female

DRUGS (1)
  1. ENOXAPARIN SODIUM [Suspect]
     Indication: ANGINA UNSTABLE
     Route: 058

REACTIONS (3)
  - BREAST NECROSIS [None]
  - COLLAPSE OF LUNG [None]
  - PLEURAL EFFUSION [None]
